FAERS Safety Report 8583292-7 (Version None)
Quarter: 2012Q3

REPORT INFORMATION
  Report Type: 
  Country: None (occurrence: None)
  Receive Date: 20120809
  Receipt Date: 20120806
  Transmission Date: 20120928
  Serious: Yes (Life-Threatening, Hospitalization, Disabling)
  Sender: FDA-Public Use
  Company Number: JP-TEVA-347828USA

PATIENT
  Sex: Male
  Weight: 57 kg

DRUGS (13)
  1. CYCLOSPORINE [Suspect]
     Indication: HISTIOCYTOSIS HAEMATOPHAGIC
     Route: 048
     Dates: start: 20110926
  2. PIRARUBICIN HYDROCHLORIDE [Concomitant]
     Indication: B-CELL LYMPHOMA
     Dosage: 80 MILLIGRAM DAILY;
     Dates: start: 20110927, end: 20111017
  3. RITUXIMAB [Suspect]
     Indication: HISTIOCYTOSIS HAEMATOPHAGIC
     Route: 042
     Dates: start: 20110413
  4. RITUXIMAB [Suspect]
     Indication: B-CELL LYMPHOMA
     Dosage: CYCLE 3 % 4
     Route: 042
     Dates: start: 20110525
  5. VINCRISTINE SULFATE [Suspect]
     Indication: HISTIOCYTOSIS HAEMATOPHAGIC
  6. VINCRISTINE SULFATE [Suspect]
     Indication: B-CELL LYMPHOMA
     Dosage: 2 MILLIGRAM DAILY;
     Route: 042
     Dates: start: 20110927
  7. PREDNISOLONE [Suspect]
     Indication: B-CELL LYMPHOMA
     Dosage: 60 MILLIGRAM DAILY;
     Route: 048
     Dates: start: 20110909, end: 20111017
  8. TREANDA [Suspect]
     Indication: B-CELL LYMPHOMA
     Route: 042
     Dates: start: 20110413
  9. CYCLOPHOSPHAMIDE [Suspect]
     Indication: HISTIOCYTOSIS HAEMATOPHAGIC
  10. PREDNISOLONE [Suspect]
     Indication: HISTIOCYTOSIS HAEMATOPHAGIC
  11. ETOPOSIDE [Suspect]
     Indication: HISTIOCYTOSIS HAEMATOPHAGIC
     Route: 042
     Dates: start: 20110913
  12. CYCLOPHOSPHAMIDE [Suspect]
     Indication: B-CELL LYMPHOMA
     Dosage: 1200 MILLIGRAM DAILY;
     Route: 042
     Dates: start: 20110927, end: 20111017
  13. DOXORUBICIN HCL [Suspect]
     Indication: HISTIOCYTOSIS HAEMATOPHAGIC
     Route: 042
     Dates: start: 20110927

REACTIONS (4)
  - CYTOMEGALOVIRUS CHORIORETINITIS [None]
  - CYTOMEGALOVIRUS HEPATITIS [None]
  - PANCYTOPENIA [None]
  - CYTOMEGALOVIRUS ENTEROCOLITIS [None]
